FAERS Safety Report 6062879-X (Version None)
Quarter: 2009Q1

REPORT INFORMATION
  Report Type: 
  Country: None (occurrence: None)
  Receive Date: 20090203
  Receipt Date: 20090121
  Transmission Date: 20090719
  Serious: Yes (Other)
  Sender: FDA-Public Use
  Company Number: JP-WYE-H07877309

PATIENT
  Sex: Male

DRUGS (3)
  1. ANCARON [Suspect]
     Indication: VENTRICULAR FIBRILLATION
     Route: 048
     Dates: start: 20081219, end: 20081224
  2. ANCARON [Suspect]
     Indication: MYOCARDIAL INFARCTION
  3. ANCARON [Concomitant]
     Indication: VENTRICULAR TACHYCARDIA
     Dosage: 1.25 MG/ML AT 1OML/MIN THEN 1.50 MG/ML AT 33 ML/HR
     Route: 042
     Dates: start: 20081212, end: 20081219

REACTIONS (1)
  - JAUNDICE [None]
